FAERS Safety Report 8837264 (Version 1)
Quarter: 2012Q4

REPORT INFORMATION
  Report Type: 
  Country: GB (occurrence: GB)
  Receive Date: 20121012
  Receipt Date: 20121012
  Transmission Date: 20130627
  Serious: Yes (Other)
  Sender: FDA-Public Use
  Company Number: GB-MYLANLABS-2012S1020400

PATIENT
  Age: 86 Year
  Sex: Male

DRUGS (6)
  1. WARFARIN [Suspect]
     Indication: ATRIAL FIBRILLATION
     Route: 065
  2. MICONAZOLE [Interacting]
     Indication: TONGUE ULCERATION
     Route: 048
  3. NYSTATIN [Concomitant]
     Route: 048
  4. DIGOXIN [Concomitant]
     Route: 065
  5. BUMETANIDE [Concomitant]
     Route: 065
  6. CHLORPHENAMINE [Concomitant]
     Route: 065

REACTIONS (3)
  - Drug interaction [Unknown]
  - International normalised ratio increased [Unknown]
  - Tongue ulceration [Recovered/Resolved]
